FAERS Safety Report 8136055-0 (Version None)
Quarter: 2012Q1

REPORT INFORMATION
  Report Type: 
  Country: None (occurrence: None)
  Receive Date: 20120214
  Receipt Date: 20120206
  Transmission Date: 20120608
  Serious: Yes (Other)
  Sender: FDA-Public Use
  Company Number: US-CELGENEUS-163-21880-12020655

PATIENT
  Age: 61 Year
  Sex: Female

DRUGS (2)
  1. REVLIMID [Suspect]
     Indication: MULTIPLE MYELOMA
     Dosage: 10 MILLIGRAM
     Route: 048
     Dates: start: 20060929, end: 20090312
  2. REVLIMID [Suspect]
     Route: 048

REACTIONS (7)
  - BREAST CANCER METASTATIC [None]
  - PLEURAL EFFUSION [None]
  - INTERNATIONAL NORMALISED RATIO INCREASED [None]
  - DECREASED APPETITE [None]
  - PLEURITIC PAIN [None]
  - DYSPNOEA [None]
  - COUGH [None]
